FAERS Safety Report 5557915-0 (Version None)
Quarter: 2007Q4

REPORT INFORMATION
  Report Type: 
  Country: None (occurrence: None)
  Receive Date: 20071214
  Receipt Date: 20071203
  Transmission Date: 20080405
  Serious: Yes (Hospitalization)
  Sender: FDA-Public Use
  Company Number: IT-ROCHE-534533

PATIENT
  Sex: Male

DRUGS (1)
  1. PEG-INTERFERON A-2A (RO 25-8310) [Suspect]
     Indication: HEPATITIS C
     Route: 065
     Dates: start: 20070601, end: 20070901

REACTIONS (3)
  - DEMYELINATION [None]
  - INTESTINAL INFARCTION [None]
  - SENSORIMOTOR DISORDER [None]
